FAERS Safety Report 7167263-3 (Version None)
Quarter: 2010Q4

REPORT INFORMATION
  Report Type: 
  Country: None (occurrence: None)
  Receive Date: 20101216
  Receipt Date: 20101215
  Transmission Date: 20110411
  Serious: Yes (Death, Other)
  Sender: FDA-Public Use
  Company Number: PHHY2010HK84873

PATIENT

DRUGS (2)
  1. AMIODARONE (NGX) [Suspect]
     Dosage: UNK
  2. AMIODARONE (NGX) [Suspect]
     Dosage: UNK
     Route: 048

REACTIONS (2)
  - ALANINE AMINOTRANSFERASE INCREASED [None]
  - MULTI-ORGAN FAILURE [None]
